APPROVED DRUG PRODUCT: FUROXONE
Active Ingredient: FURAZOLIDONE
Strength: 100MG
Dosage Form/Route: TABLET;ORAL
Application: N011270 | Product #002
Applicant: SHIRE DEVELOPMENT INC
Approved: Approved Prior to Jan 1, 1982 | RLD: No | RS: No | Type: DISCN